FAERS Safety Report 5266646-6 (Version None)
Quarter: 2007Q1

REPORT INFORMATION
  Report Type: 
  Country: None (occurrence: None)
  Receive Date: 20070312
  Receipt Date: 20070227
  Transmission Date: 20070707
  Serious: Yes (Death, Hospitalization)
  Sender: FDA-Public Use
  Company Number: 2007SP002739

PATIENT
  Age: 68 Year
  Sex: Female

DRUGS (16)
  1. NOXAFIL [Suspect]
     Indication: BRONCHOPULMONARY ASPERGILLOSIS
     Dosage: 800 MG QD PO
     Route: 048
     Dates: start: 20061215, end: 20061222
  2. TAVANIC [Concomitant]
  3. TEGRETOL [Concomitant]
  4. LISKANTIN [Concomitant]
  5. MAGNO SANOL [Concomitant]
  6. KALINOR RET [Concomitant]
  7. CARMUSTINE [Concomitant]
  8. ARAC [Concomitant]
  9. ETOPOSIDE [Concomitant]
  10. MELPHALAN [Concomitant]
  11. PALIFERMIN [Concomitant]
  12. AMBISOME [Concomitant]
  13. DIFLUCAN [Concomitant]
  14. VFEND [Concomitant]
  15. ACYCLOVIR [Concomitant]
  16. CLEXANE [Concomitant]

REACTIONS (7)
  - ACUTE HEPATIC FAILURE [None]
  - DISSEMINATED INTRAVASCULAR COAGULATION [None]
  - DRUG TOXICITY [None]
  - HAEMODIALYSIS [None]
  - HAEMOLYSIS [None]
  - HAEMOPTYSIS [None]
  - HEPATOCELLULAR DAMAGE [None]
